FAERS Safety Report 6706488-5 (Version None)
Quarter: 2010Q2

REPORT INFORMATION
  Report Type: 
  Country: None (occurrence: None)
  Receive Date: 20100503
  Receipt Date: 20100427
  Transmission Date: 20101027
  Serious: No
  Sender: FDA-Public Use
  Company Number: US-ROXANE LABORATORIES, INC.-2010-RO-00478RO

PATIENT
  Sex: Female

DRUGS (2)
  1. PREDNISONE TAB [Suspect]
     Route: 048
     Dates: start: 20100301, end: 20100301
  2. FORTEO [Suspect]
     Indication: OSTEOPOROSIS

REACTIONS (1)
  - PALPITATIONS [None]
